FAERS Safety Report 8855026 (Version 1)
Quarter: 2012Q4

REPORT INFORMATION
  Report Type: 
  Country: US (occurrence: US)
  Receive Date: 20121023
  Receipt Date: 20121023
  Transmission Date: 20130627
  Serious: Yes (Other)
  Sender: FDA-Public Use
  Company Number: PHEH2012US020609

PATIENT

DRUGS (2)
  1. OXCARBAZEPINE [Suspect]
     Dosage: UNK UKN, UNK
     Route: 062
  2. LEVETIRACETAM [Concomitant]

REACTIONS (4)
  - Umbilical cord short [Unknown]
  - Joint dislocation [Unknown]
  - Premature baby [Unknown]
  - Foetal exposure during pregnancy [Unknown]
